FAERS Safety Report 6519017-6 (Version None)
Quarter: 2009Q4

REPORT INFORMATION
  Report Type: 
  Country: None (occurrence: None)
  Receive Date: 20091228
  Receipt Date: 20091215
  Transmission Date: 20100525
  Serious: Yes (Other)
  Sender: FDA-Public Use
  Company Number: US-MYLANLABS-2009S1020740

PATIENT
  Age: 24 Year
  Sex: Female

DRUGS (3)
  1. AMNESTEEM [Suspect]
     Dates: start: 20090403
  2. SOTRET [Suspect]
  3. AMNESTEEM [Suspect]
     Route: 048
     Dates: end: 20091010

REACTIONS (1)
  - DRUG EXPOSURE DURING PREGNANCY [None]
